FAERS Safety Report 11151941 (Version 1)
Quarter: 2015Q2

REPORT INFORMATION
  Report Type: Spontaneous
  Country: US (occurrence: None)
  Receive Date: 20150529
  Receipt Date: 20150529
  Transmission Date: 20150821
  Serious: No
  Sender: FDA-Public Use
  Company Number: None

PATIENT
  Age: 32 Year
  Sex: Female
  Weight: 38.56 kg

DRUGS (4)
  1. ZANIFLEX [Concomitant]
  2. LYRICA [Concomitant]
     Active Substance: PREGABALIN
  3. TYLENOL WITH CODEINE [Concomitant]
     Active Substance: ACETAMINOPHEN\CODEINE PHOSPHATE
  4. NORTHERA [Suspect]
     Active Substance: DROXIDOPA
     Indication: HYPOTENSION
     Dosage: 4 PILLS THREE TIMES DAILY
     Route: 048

REACTIONS (4)
  - Body temperature increased [None]
  - Headache [None]
  - Nausea [None]
  - Musculoskeletal pain [None]

NARRATIVE: CASE EVENT DATE: 20150525
